FAERS Safety Report 4455712-0 (Version None)
Quarter: 2004Q3

REPORT INFORMATION
  Report Type: 
  Country: None (occurrence: None)
  Receive Date: 20040920
  Receipt Date: 20040920
  Transmission Date: 20050211
  Serious: No
  Sender: FDA-Public Use
  Company Number: None

PATIENT

DRUGS (1)
  1. PLETAL [Suspect]

REACTIONS (10)
  - ABDOMINAL PAIN UPPER [None]
  - BALANCE DISORDER [None]
  - BONE PAIN [None]
  - CONDITION AGGRAVATED [None]
  - DIARRHOEA [None]
  - DIZZINESS [None]
  - DYSPNOEA [None]
  - HEADACHE [None]
  - INSOMNIA [None]
  - OEDEMA PERIPHERAL [None]
